FAERS Safety Report 12238984 (Version 1)
Quarter: 2016Q2

REPORT INFORMATION
  Report Type: Report from Study
  Country: US (occurrence: US)
  Receive Date: 20160405
  Receipt Date: 20160405
  Transmission Date: 20160815
  Serious: Yes (Hospitalization)
  Sender: FDA-Public Use
  Company Number: US-BIOGEN-2016BI00212561

PATIENT
  Age: 43 Year
  Sex: Female

DRUGS (1)
  1. TECFIDERA [Suspect]
     Active Substance: DIMETHYL FUMARATE
     Indication: MULTIPLE SCLEROSIS
     Dosage: MAINTENANCE DOSE
     Route: 048

REACTIONS (8)
  - Nasopharyngitis [Unknown]
  - Paraesthesia [Unknown]
  - Dehydration [Recovered/Resolved]
  - Hallucination [Recovered/Resolved]
  - Eye movement disorder [Not Recovered/Not Resolved]
  - Stress [Unknown]
  - Peroneal nerve palsy [Unknown]
  - Seizure [Unknown]

NARRATIVE: CASE EVENT DATE: 201603
